FAERS Safety Report 5175041-X (Version None)
Quarter: 2006Q4

REPORT INFORMATION
  Report Type: 
  Country: None (occurrence: None)
  Receive Date: 20061206
  Receipt Date: 20061115
  Transmission Date: 20070319
  Serious: Yes (Hospitalization, Other)
  Sender: FDA-Public Use
  Company Number: 2006SP006690

PATIENT
  Age: 56 Year
  Sex: Female

DRUGS (8)
  1. TEMODAL [Suspect]
     Indication: GLIOBLASTOMA MULTIFORME
     Dosage: 100 MG; QD; PO
     Route: 048
     Dates: start: 20061023, end: 20061112
  2. ZONEGRAN [Suspect]
     Indication: EPILEPSY
     Dosage: 200 MG; PO
     Route: 048
     Dates: start: 20061017, end: 20061110
  3. ZONEGRAN [Suspect]
     Indication: PROPHYLAXIS
     Dosage: 200 MG; PO
     Route: 048
     Dates: start: 20061017, end: 20061110
  4. ISOBIDE (CON.) [Concomitant]
  5. DECADRON (CON.) [Concomitant]
  6. ZOFRAN (CON.) [Concomitant]
  7. TOUGHMAC E (CON.) [Concomitant]
  8. GASTER D (CON.) [Concomitant]

REACTIONS (1)
  - STEVENS-JOHNSON SYNDROME [None]
